FAERS Safety Report 14253391 (Version 9)
Quarter: 2023Q4

REPORT INFORMATION
  Report Type: Spontaneous
  Country: DE (occurrence: DE)
  Receive Date: 20171205
  Receipt Date: 20231211
  Transmission Date: 20240110
  Serious: Yes (Other)
  Sender: FDA-Public Use
  Company Number: DE-BRISTOL-MYERS SQUIBB COMPANY-BMS-2017-099811

PATIENT
  Age: 51 Year
  Sex: Male

DRUGS (3)
  1. PEMBROLIZUMAB [Suspect]
     Active Substance: PEMBROLIZUMAB
     Indication: Product used for unknown indication
     Dosage: UNK
     Route: 065
     Dates: start: 201507
  2. INFLIXIMAB [Suspect]
     Active Substance: INFLIXIMAB
     Indication: Product used for unknown indication
     Dosage: DOSAGE FORM: LYOPHILIZED POWDER
     Route: 042
  3. YERVOY [Suspect]
     Active Substance: IPILIMUMAB
     Indication: Malignant melanoma
     Dosage: 3 MG/KG, UNK
     Route: 065
     Dates: start: 201504, end: 201507

REACTIONS (9)
  - Autoimmune colitis [Recovering/Resolving]
  - Duodenitis [Recovering/Resolving]
  - Ileus paralytic [Recovering/Resolving]
  - Gastritis [Recovering/Resolving]
  - Malignant neoplasm progression [Unknown]
  - Diarrhoea [Unknown]
  - Drug ineffective [Unknown]
  - Fatigue [Recovering/Resolving]
  - Malaise [Recovering/Resolving]

NARRATIVE: CASE EVENT DATE: 20150401
